FAERS Safety Report 16303308 (Version 2)
Quarter: 2020Q4

REPORT INFORMATION
  Report Type: Spontaneous
  Country: US (occurrence: US)
  Receive Date: 20190513
  Receipt Date: 20201224
  Transmission Date: 20210113
  Serious: Yes (Death, Other)
  Sender: FDA-Public Use
  Company Number: US-ASTRAZENECA-2019SE65864

PATIENT
  Age: 26543 Day
  Sex: Female

DRUGS (76)
  1. PRILOSEC [Suspect]
     Active Substance: OMEPRAZOLE MAGNESIUM
     Indication: GASTROOESOPHAGEAL REFLUX DISEASE
     Dosage: GENERIC
     Route: 065
     Dates: start: 201001, end: 201312
  2. FUROSEMIDE. [Concomitant]
     Active Substance: FUROSEMIDE
     Indication: DIURETIC THERAPY
     Dates: start: 201308, end: 201308
  3. AMITRIPTYLINE [Concomitant]
     Active Substance: AMITRIPTYLINE
     Indication: PAIN
     Dates: start: 201102, end: 201311
  4. CRESTOR [Concomitant]
     Active Substance: ROSUVASTATIN CALCIUM
     Indication: BLOOD CHOLESTEROL INCREASED
     Dates: start: 201202, end: 201206
  5. SIMVASTATIN. [Concomitant]
     Active Substance: SIMVASTATIN
     Indication: BLOOD CHOLESTEROL INCREASED
     Dates: start: 200706, end: 201105
  6. NEURONTIN [Concomitant]
     Active Substance: GABAPENTIN
  7. BUMEX [Concomitant]
     Active Substance: BUMETANIDE
  8. PROCHLORPERAZINE. [Concomitant]
     Active Substance: PROCHLORPERAZINE
  9. LISINOPRIL. [Concomitant]
     Active Substance: LISINOPRIL
     Indication: HYPERTENSION
     Dates: start: 200608, end: 200912
  10. ATORVASTATIN [Concomitant]
     Active Substance: ATORVASTATIN
     Indication: BLOOD CHOLESTEROL INCREASED
     Dates: start: 201501, end: 201501
  11. AMITRIPTYLINE [Concomitant]
     Active Substance: AMITRIPTYLINE
     Indication: PAIN
     Dates: start: 201512, end: 201606
  12. LIPITOR [Concomitant]
     Active Substance: ATORVASTATIN CALCIUM
     Indication: BLOOD CHOLESTEROL INCREASED
     Dates: start: 201111, end: 201111
  13. BENADRYL [Concomitant]
     Active Substance: DIPHENHYDRAMINE HYDROCHLORIDE
     Indication: MULTIPLE ALLERGIES
     Dates: start: 2005, end: 201907
  14. ADVAIR HFA [Concomitant]
     Active Substance: FLUTICASONE PROPIONATE\SALMETEROL XINAFOATE
  15. HUMALOG [Concomitant]
     Active Substance: INSULIN LISPRO
  16. ZETIA [Concomitant]
     Active Substance: EZETIMIBE
  17. KAPIDEX [Concomitant]
     Active Substance: DEXLANSOPRAZOLE
  18. PRAMIPEXOLE. [Concomitant]
     Active Substance: PRAMIPEXOLE
  19. CARTIA [Concomitant]
  20. FUROSEMIDE. [Concomitant]
     Active Substance: FUROSEMIDE
     Indication: DIURETIC THERAPY
     Dates: start: 200707, end: 200807
  21. ATORVASTATIN [Concomitant]
     Active Substance: ATORVASTATIN
     Indication: BLOOD CHOLESTEROL INCREASED
     Dates: start: 201207, end: 201411
  22. AMITRIPTYLINE [Concomitant]
     Active Substance: AMITRIPTYLINE
     Indication: PAIN
     Dates: start: 201403, end: 201410
  23. LEVOFLOXACIN. [Concomitant]
     Active Substance: LEVOFLOXACIN
     Indication: INFECTION
     Dates: start: 201703, end: 201703
  24. METOLAZONE. [Concomitant]
     Active Substance: METOLAZONE
  25. ONDANSETRON [Concomitant]
     Active Substance: ONDANSETRON
  26. VIGAMOX [Concomitant]
     Active Substance: MOXIFLOXACIN HYDROCHLORIDE
  27. TRAMADOL. [Concomitant]
     Active Substance: TRAMADOL
     Indication: PAIN
     Dates: start: 201312, end: 201404
  28. FUROSEMIDE. [Concomitant]
     Active Substance: FUROSEMIDE
     Indication: DIURETIC THERAPY
     Dates: start: 200901, end: 200901
  29. FUROSEMIDE. [Concomitant]
     Active Substance: FUROSEMIDE
     Indication: DIURETIC THERAPY
     Dates: start: 201403, end: 201411
  30. LISINOPRIL. [Concomitant]
     Active Substance: LISINOPRIL
     Indication: HYPERTENSION
     Dates: start: 201110, end: 201401
  31. AZITHROMYCIN ANHYDROUS. [Concomitant]
     Active Substance: AZITHROMYCIN ANHYDROUS
     Indication: INFECTION
     Dates: start: 201312, end: 201312
  32. AZITHROMYCIN ANHYDROUS. [Concomitant]
     Active Substance: AZITHROMYCIN ANHYDROUS
     Indication: INFECTION
     Dates: start: 201404, end: 201412
  33. DOXYCYCLINE. [Concomitant]
     Active Substance: DOXYCYCLINE
     Indication: INFECTION
     Dates: start: 200712, end: 200808
  34. TYLENOL [Concomitant]
     Active Substance: ACETAMINOPHEN
  35. PROVENTIL [Concomitant]
     Active Substance: ALBUTEROL
  36. SOMA [Concomitant]
     Active Substance: CARISOPRODOL
  37. GLUCOTROL [Concomitant]
     Active Substance: GLIPIZIDE
  38. ANUSOL NOS [Concomitant]
     Active Substance: BALSAM PERU\BENZYL BENZOATE\BISMUTH HYDROXIDE\BISMUTH SUBGALLATE\HYDROCORTISONE ACETATE\ZINC OXIDE
  39. WARFARIN [Concomitant]
     Active Substance: WARFARIN
  40. PRILOSEC OTC [Suspect]
     Active Substance: OMEPRAZOLE MAGNESIUM
     Indication: GASTROOESOPHAGEAL REFLUX DISEASE
     Route: 048
     Dates: start: 200709, end: 200910
  41. TRAMADOL. [Concomitant]
     Active Substance: TRAMADOL
     Indication: PAIN
     Dates: start: 200906, end: 200907
  42. TRAMADOL. [Concomitant]
     Active Substance: TRAMADOL
     Indication: PAIN
     Dates: start: 201105, end: 201107
  43. AZITHROMYCIN ANHYDROUS. [Concomitant]
     Active Substance: AZITHROMYCIN ANHYDROUS
     Indication: INFECTION
     Dates: start: 201607, end: 201702
  44. TMP-SMX [Concomitant]
     Active Substance: SULFAMETHOXAZOLE\TRIMETHOPRIM
     Indication: INFECTION
     Dates: start: 200911, end: 200911
  45. TMP-SMX [Concomitant]
     Active Substance: SULFAMETHOXAZOLE\TRIMETHOPRIM
     Indication: INFECTION
     Dates: start: 201702, end: 201702
  46. DOXYCYCLINE. [Concomitant]
     Active Substance: DOXYCYCLINE
     Indication: INFECTION
     Dates: start: 201501, end: 201501
  47. SPIRONOLACTONE. [Concomitant]
     Active Substance: SPIRONOLACTONE
     Indication: DIURETIC THERAPY
     Dates: start: 201608, end: 201704
  48. LEVOFLOXACIN. [Concomitant]
     Active Substance: LEVOFLOXACIN
     Indication: INFECTION
     Dates: start: 201501, end: 201501
  49. BENADRYL [Concomitant]
     Active Substance: DIPHENHYDRAMINE HYDROCHLORIDE
     Indication: SLEEP DISORDER
     Dates: start: 2005, end: 201907
  50. ALDACTONE [Concomitant]
     Active Substance: SPIRONOLACTONE
  51. ZAROXOLYN [Concomitant]
     Active Substance: METOLAZONE
  52. MONTELUKAST [Concomitant]
     Active Substance: MONTELUKAST SODIUM
  53. PRILOSEC [Suspect]
     Active Substance: OMEPRAZOLE MAGNESIUM
     Indication: GASTROOESOPHAGEAL REFLUX DISEASE
     Dosage: GENERIC
     Route: 065
     Dates: start: 201404, end: 201601
  54. TRAMADOL. [Concomitant]
     Active Substance: TRAMADOL
     Indication: PAIN
     Dates: start: 201303, end: 201303
  55. TRAMADOL. [Concomitant]
     Active Substance: TRAMADOL
     Indication: PAIN
     Dates: start: 201701, end: 201703
  56. MIRAPEX [Concomitant]
     Active Substance: PRAMIPEXOLE DIHYDROCHLORIDE
  57. LYRICA [Concomitant]
     Active Substance: PREGABALIN
  58. ELAVIL [Concomitant]
     Active Substance: AMITRIPTYLINE HYDROCHLORIDE
  59. DIPHENOXYLATE [Concomitant]
     Active Substance: DIPHENOXYLATE
  60. NYSTATIN. [Concomitant]
     Active Substance: NYSTATIN
  61. PREVACID [Suspect]
     Active Substance: LANSOPRAZOLE
     Indication: GASTROOESOPHAGEAL REFLUX DISEASE
     Route: 065
     Dates: start: 200608, end: 200705
  62. TRAMADOL. [Concomitant]
     Active Substance: TRAMADOL
     Indication: PAIN
     Dates: start: 201603, end: 201603
  63. CELEBREX [Concomitant]
     Active Substance: CELECOXIB
     Indication: PAIN
     Dates: start: 200608, end: 201310
  64. CELEBREX [Concomitant]
     Active Substance: CELECOXIB
     Indication: PAIN
     Dates: start: 201411, end: 201411
  65. LOVASTATIN. [Concomitant]
     Active Substance: LOVASTATIN
     Indication: BLOOD CHOLESTEROL INCREASED
     Dates: start: 201106, end: 201110
  66. DICLOFENAC [Concomitant]
     Active Substance: DICLOFENAC
     Indication: PAIN
     Dates: start: 201704, end: 201704
  67. COMBIVENT [Concomitant]
     Active Substance: ALBUTEROL SULFATE\IPRATROPIUM BROMIDE
  68. PRILOSEC [Suspect]
     Active Substance: OMEPRAZOLE MAGNESIUM
     Indication: GASTROOESOPHAGEAL REFLUX DISEASE
     Route: 048
     Dates: start: 200201, end: 201612
  69. TRAMADOL. [Concomitant]
     Active Substance: TRAMADOL
     Indication: PAIN
     Dates: start: 201202, end: 201210
  70. FUROSEMIDE. [Concomitant]
     Active Substance: FUROSEMIDE
     Indication: DIURETIC THERAPY
     Dates: start: 200611, end: 200611
  71. FUROSEMIDE. [Concomitant]
     Active Substance: FUROSEMIDE
     Indication: DIURETIC THERAPY
     Dates: start: 201001, end: 201001
  72. LIPITOR [Concomitant]
     Active Substance: ATORVASTATIN CALCIUM
     Indication: BLOOD CHOLESTEROL INCREASED
     Dates: start: 200608, end: 200703
  73. SPIRONOLACTONE. [Concomitant]
     Active Substance: SPIRONOLACTONE
     Indication: HYPERTENSION
     Dates: start: 201608, end: 201704
  74. HYDRALAZINE [Concomitant]
     Active Substance: HYDRALAZINE HYDROCHLORIDE
     Indication: HYPERTENSION
     Dates: start: 201511, end: 201704
  75. TUMS [Concomitant]
     Active Substance: CALCIUM CARBONATE
     Dosage: 1-2 TIMES A DAY
     Dates: end: 201907
  76. SINGULAIR [Concomitant]
     Active Substance: MONTELUKAST SODIUM

REACTIONS (4)
  - Renal tubular necrosis [Unknown]
  - Renal failure [Unknown]
  - Chronic kidney disease [Not Recovered/Not Resolved]
  - Acute kidney injury [Not Recovered/Not Resolved]

NARRATIVE: CASE EVENT DATE: 20090108
